FAERS Safety Report 11429663 (Version 1)
Quarter: 2015Q3

REPORT INFORMATION
  Report Type: Spontaneous
  Country: US (occurrence: US)
  Receive Date: 20150828
  Receipt Date: 20150828
  Transmission Date: 20151125
  Serious: No
  Sender: FDA-Public Use
  Company Number: US-ROCHE-1203942

PATIENT
  Sex: Male

DRUGS (3)
  1. PEGASYS [Suspect]
     Active Substance: PEGINTERFERON ALFA-2A
     Indication: HEPATITIS C
     Route: 065
     Dates: start: 20130222
  2. RIBAVIRIN. [Suspect]
     Active Substance: RIBAVIRIN
     Indication: HEPATITIS C
     Route: 065
     Dates: start: 20130222
  3. TYLENOL [Concomitant]
     Active Substance: ACETAMINOPHEN
     Indication: HEPATITIS C
     Route: 065

REACTIONS (4)
  - Dermatitis acneiform [Unknown]
  - Platelet count decreased [Unknown]
  - Memory impairment [Unknown]
  - Headache [Unknown]
